FAERS Safety Report 17959987 (Version 13)
Quarter: 2020Q4

REPORT INFORMATION
  Report Type: Report from Study
  Country: JP (occurrence: JP)
  Receive Date: 20200629
  Receipt Date: 20201229
  Transmission Date: 20210113
  Serious: Yes (Hospitalization, Other)
  Sender: FDA-Public Use
  Company Number: JP-PFIZER INC-2019-07465

PATIENT
  Age: 70 Year
  Sex: Male
  Weight: 65.5 kg

DRUGS (26)
  1. MEKTOVI [Suspect]
     Active Substance: BINIMETINIB
     Dosage: 90 MG, EVERYDAY
     Route: 048
     Dates: start: 20191116, end: 20191202
  2. MEKTOVI [Suspect]
     Active Substance: BINIMETINIB
     Dosage: 90 MG, EVERYDAY
     Route: 048
     Dates: start: 20191219, end: 20200125
  3. BRAFTOVI [Suspect]
     Active Substance: ENCORAFENIB
     Dosage: 300 MG, EVERYDAY
     Route: 048
     Dates: start: 20191219, end: 20191224
  4. DENOSUMAB [Concomitant]
     Active Substance: DENOSUMAB
     Indication: MALIGNANT MELANOMA
     Dosage: 120 MG
     Route: 065
     Dates: start: 201904
  5. PREDONINE [Concomitant]
     Active Substance: PREDNISOLONE
     Dosage: UNK
     Route: 048
  6. FAMOTIDINE. [Concomitant]
     Active Substance: FAMOTIDINE
     Dosage: UNK
     Route: 048
  7. MAGNESIUM OXIDE. [Concomitant]
     Active Substance: MAGNESIUM OXIDE
     Dosage: UNK
     Route: 048
  8. MEKTOVI [Suspect]
     Active Substance: BINIMETINIB
     Indication: MALIGNANT MELANOMA
     Dosage: 45 MG, Q12H
     Route: 048
     Dates: start: 20190826, end: 20190828
  9. BRAFTOVI [Suspect]
     Active Substance: ENCORAFENIB
     Indication: MALIGNANT MELANOMA
     Dosage: 450 MG, EVERYDAY
     Route: 048
     Dates: start: 20190826, end: 20190828
  10. RINDERON [BETAMETHASONE ACETATE;BETAMETHASONE SODIUM PHOSPHATE] [Concomitant]
     Active Substance: BETAMETHASONE ACETATE\BETAMETHASONE SODIUM PHOSPHATE
     Dosage: UNK(LIQUID)
     Route: 065
  11. BRAFTOVI [Suspect]
     Active Substance: ENCORAFENIB
     Dosage: 450 MG, EVERYDAY
     Route: 048
     Dates: start: 20191225, end: 20200125
  12. CLOPIDOGREL [CLOPIDOGREL BISULFATE] [Concomitant]
     Active Substance: CLOPIDOGREL BISULFATE
     Dosage: UNK
     Route: 048
  13. IMIDAPRIL HYDROCHLORIDE OHARA [Concomitant]
     Dosage: UNK
     Route: 048
  14. CELECOX [Concomitant]
     Active Substance: CELECOXIB
     Dosage: UNK
     Route: 048
  15. YERVOY [Suspect]
     Active Substance: IPILIMUMAB
     Indication: MALIGNANT MELANOMA
     Dosage: 3 MG/KG, Q3W
     Route: 041
     Dates: start: 20190415, end: 20190618
  16. BRAFTOVI [Suspect]
     Active Substance: ENCORAFENIB
     Dosage: 450 MG, EVERYDAY
     Route: 048
     Dates: start: 20191120, end: 20191202
  17. AZOSEMIDE [Concomitant]
     Active Substance: AZOSEMIDE
     Dosage: UNK
     Route: 048
  18. TRAMAL [Concomitant]
     Active Substance: TRAMADOL
     Dosage: UNK
     Route: 048
  19. BRAFTOVI [Suspect]
     Active Substance: ENCORAFENIB
     Dosage: 300 MG, EVERYDAY
     Route: 048
     Dates: start: 20191116, end: 20191119
  20. DENOSUMAB [Concomitant]
     Active Substance: DENOSUMAB
     Dosage: 120 MG
     Route: 065
     Dates: start: 20190528
  21. DENOTAS [Concomitant]
     Active Substance: CALCIUM CARBONATE\CHOLECALCIFEROL\MAGNESIUM CARBONATE
     Dosage: UNK
     Route: 048
  22. ADOAIR [Concomitant]
     Active Substance: FLUTICASONE PROPIONATE\SALMETEROL XINAFOATE
     Dosage: UNK
     Route: 065
  23. CALONAL [Concomitant]
     Active Substance: ACETAMINOPHEN
     Dosage: UNK
     Route: 048
  24. OPDIVO [Suspect]
     Active Substance: NIVOLUMAB
     Indication: MALIGNANT MELANOMA
     Dosage: 80 MG, Q3W (BODY (2019/04/15, 2019/05/07, 2019/05/28, 2019/06/18)
     Route: 041
     Dates: start: 20190415, end: 20190618
  25. AMLODIPINE [AMLODIPINE BESILATE] [Concomitant]
     Active Substance: AMLODIPINE BESYLATE
     Dosage: UNK
     Route: 048
  26. PITAVASTATIN CALCIUM OD KOG [Concomitant]
     Dosage: UNK
     Route: 048

REACTIONS (16)
  - Uveitis [Recovered/Resolved]
  - Inguinal hernia [Unknown]
  - Benign prostatic hyperplasia [Unknown]
  - Pneumonia [Recovering/Resolving]
  - Hypothyroidism [Recovered/Resolved]
  - Drug eruption [Recovering/Resolving]
  - Hepatic function abnormal [Recovering/Resolving]
  - Hypopituitarism [Recovered/Resolved]
  - Uveitis [Unknown]
  - Myocardial infarction [Unknown]
  - Duodenal ulcer [Unknown]
  - Pancreatitis [Recovered/Resolved]
  - Serous retinal detachment [Recovering/Resolving]
  - Lymphocyte count decreased [Unknown]
  - Hepatic function abnormal [Recovered/Resolved]
  - Hyperkalaemia [Unknown]

NARRATIVE: CASE EVENT DATE: 201905
